FAERS Safety Report 6187784-X (Version None)
Quarter: 2009Q2

REPORT INFORMATION
  Report Type: 
  Country: None (occurrence: None)
  Receive Date: 20090513
  Receipt Date: 20090508
  Transmission Date: 20091009
  Serious: Yes (Hospitalization)
  Sender: FDA-Public Use
  Company Number: JP-BRISTOL-MYERS SQUIBB COMPANY-14580187

PATIENT
  Age: 65 Year
  Sex: Female
  Weight: 51 kg

DRUGS (14)
  1. ERBITUX [Suspect]
     Indication: RECTAL CANCER
     Dosage: ON 05NOV08(250MG/M2);09JAN09: MOST RECENT (9TH) INF, 250MG IV
     Route: 042
     Dates: start: 20081029
  2. IRINOTECAN HCL [Suspect]
     Indication: RECTAL CANCER
     Dosage: ON 12NOV08(120MG/M2);09JAN09 MOST RECENT INF (9TH) 140MG
     Route: 042
     Dates: start: 20081029, end: 20090109
  3. DIPHENHYDRAMINE HCL [Concomitant]
     Indication: PREMEDICATION
     Dosage: FORM=TABS
     Route: 048
  4. DECADRON [Concomitant]
     Indication: PREMEDICATION
     Dosage: ON 30OCT08-4MG; FORM = INJ
     Route: 042
  5. ONDANSETRON [Concomitant]
     Indication: ANTIEMETIC SUPPORTIVE CARE
     Dosage: FORM=INJ
     Dates: start: 20081029
  6. KYTRIL [Concomitant]
     Indication: ANTIEMETIC SUPPORTIVE CARE
     Dosage: FORM=TABS
     Dates: start: 20081030
  7. PARIET [Concomitant]
     Dosage: FORMULATION = TABLET
     Route: 048
  8. ALOSENN [Concomitant]
     Route: 048
  9. OXYCONTIN [Concomitant]
     Dosage: FORM=TABS
     Route: 048
     Dates: end: 20081204
  10. LOXONIN [Concomitant]
     Dosage: 1 DF= 3T; FORM=TABS
     Route: 048
  11. MAGLAX [Concomitant]
     Dosage: 1 DF= 3T; FORM=TABS
     Route: 048
  12. DAI-KENCHU-TO [Concomitant]
     Dosage: 1 DF= 7.5 (UNITS NOT PROVIDED)
     Route: 048
  13. ZYPREXA [Concomitant]
     Dosage: 1 DOSAGE FOR = 7.5 (UNIT NOT SPECIFIED)
     Route: 048
     Dates: start: 20090110
  14. DUROTEP [Concomitant]
     Indication: CANCER PAIN
     Dosage: ALSO RECEIVED 4.2 MG AND 10.5 MG TOPICAALY FROM 04-DEC-2008.
     Route: 061
     Dates: start: 20081204

REACTIONS (2)
  - ANOREXIA [None]
  - DIARRHOEA [None]
